FAERS Safety Report 14678028 (Version 1)
Quarter: 2018Q1

REPORT INFORMATION
  Report Type: Spontaneous
  Country: US (occurrence: US)
  Receive Date: 20180326
  Receipt Date: 20180326
  Transmission Date: 20180509
  Serious: No
  Sender: FDA-Public Use
  Company Number: US-TEIKOKU PHARMA USA-TPU2018-00063

PATIENT
  Sex: Female
  Weight: 73.55 kg

DRUGS (6)
  1. NORCO [Concomitant]
     Active Substance: ACETAMINOPHEN\HYDROCODONE BITARTRATE
     Indication: PAIN
  2. LIDOCAINE PATCH [Suspect]
     Active Substance: LIDOCAINE
     Indication: COMPLEX REGIONAL PAIN SYNDROME
     Dosage: APPLY TWO PATCHES TO LOWER BACK, AND APPLY 1 PATCH TO LEFT FOOT
     Route: 061
     Dates: start: 2011
  3. LIDOCAINE PATCH [Suspect]
     Active Substance: LIDOCAINE
     Indication: SPINAL OPERATION
     Dosage: INTERMITTENTLY AFTER RECONSTRUCTIVE BACK SURGERY
     Route: 061
     Dates: start: 2003
  4. XANAX [Concomitant]
     Active Substance: ALPRAZOLAM
     Dosage: TWO TABLETS PER DAY
  5. METHOCARBAMOL. [Concomitant]
     Active Substance: METHOCARBAMOL
     Dosage: 1-2 TABS DAILY
  6. TOPAMAX [Concomitant]
     Active Substance: TOPIRAMATE

REACTIONS (1)
  - Complex regional pain syndrome [Not Recovered/Not Resolved]

NARRATIVE: CASE EVENT DATE: 2011
